FAERS Safety Report 17989314 (Version 1)
Quarter: 2020Q3

REPORT INFORMATION
  Report Type: Spontaneous
  Country: US (occurrence: US)
  Receive Date: 20200707
  Receipt Date: 20200707
  Transmission Date: 20201103
  Serious: Yes (Other)
  Sender: FDA-Public Use
  Company Number: None

PATIENT
  Age: 72 Year
  Sex: Female

DRUGS (1)
  1. VENLAFAXINE ER TAB [Suspect]
     Active Substance: VENLAFAXINE HYDROCHLORIDE
     Route: 048
     Dates: start: 20200401, end: 20200403

REACTIONS (2)
  - Nausea [None]
  - Drug ineffective [None]

NARRATIVE: CASE EVENT DATE: 20200401
